FAERS Safety Report 7634896-7 (Version None)
Quarter: 2011Q3

REPORT INFORMATION
  Report Type: 
  Country: None (occurrence: None)
  Receive Date: 20110726
  Receipt Date: 20110718
  Transmission Date: 20111222
  Serious: Yes (Other)
  Sender: FDA-Public Use
  Company Number: GB-B.I. PHARMACEUTICALS,INC./RIDGEFIELD-2011-UK-00689UK

PATIENT
  Age: 74 Year
  Sex: Female
  Weight: 59.8 kg

DRUGS (11)
  1. DOMPERIDONE [Concomitant]
  2. FUROSEMIDE [Concomitant]
  3. ACETAMINOPHEN [Concomitant]
  4. QUININE SULFATE [Concomitant]
  5. SALMOL [Concomitant]
  6. SINEMET [Concomitant]
     Dosage: DOSE 62.5 DOSAGE/INTERVAL 3/1DAYS
  7. MADOPAR [Concomitant]
     Dosage: 62.5 NR
  8. STALEVO 100 [Concomitant]
  9. PRAMIPEXOLE DIHYDROCHLORIDE [Suspect]
     Indication: PARKINSON'S DISEASE
     Dosage: DOSE 1MG DOSAGE INTERVAL 3/1DAYS
     Route: 048
     Dates: start: 20060801, end: 20090929
  10. RAMIPRIL [Concomitant]
  11. LANSOPRAZOLE [Concomitant]

REACTIONS (2)
  - PERSONALITY CHANGE [None]
  - PATHOLOGICAL GAMBLING [None]
